FAERS Safety Report 19069142 (Version 1)
Quarter: 2021Q1

REPORT INFORMATION
  Report Type: Spontaneous
  Country: CA (occurrence: CA)
  Receive Date: 20210329
  Receipt Date: 20210329
  Transmission Date: 20210420
  Serious: Yes (Hospitalization)
  Sender: FDA-Public Use
  Company Number: CA-JNJFOC-20210348876

PATIENT
  Age: 65 Year
  Sex: Female

DRUGS (1)
  1. INFLIXIMAB, RECOMBINANT [Suspect]
     Active Substance: INFLIXIMAB
     Indication: CROHN^S DISEASE
     Route: 042

REACTIONS (5)
  - Asthenia [Recovered/Resolved]
  - Blood pressure systolic increased [Recovered/Resolved]
  - Condition aggravated [Recovered/Resolved]
  - Cerebrovascular accident [Recovered/Resolved]
  - Malaise [Recovered/Resolved]
